FAERS Safety Report 6793884-3 (Version None)
Quarter: 2010Q2

REPORT INFORMATION
  Report Type: 
  Country: None (occurrence: None)
  Receive Date: 20100624
  Receipt Date: 20100614
  Transmission Date: 20101027
  Serious: Yes (Other)
  Sender: FDA-Public Use
  Company Number: US-MYLANLABS-2010S1006191

PATIENT
  Age: 34 Year
  Sex: Male

DRUGS (13)
  1. CLOZAPINE [Suspect]
     Indication: PSYCHOTIC DISORDER
     Dates: start: 20090708
  2. CLOZAPINE [Suspect]
     Dates: start: 20100127, end: 20100511
  3. CLOZAPINE [Suspect]
     Dates: start: 20100127, end: 20100511
  4. CLOZAPINE [Suspect]
     Dates: start: 20100127, end: 20100511
  5. CLOZAPINE [Suspect]
     Dates: start: 20100517
  6. CLOZAPINE [Suspect]
     Dates: start: 20100517
  7. LITHIUM [Suspect]
     Dates: end: 20100326
  8. LITHIUM [Suspect]
     Dates: start: 20100514
  9. AMLODIPINE [Concomitant]
  10. DIVALPROEX SODIUM EXTENDED RELEASE [Concomitant]
  11. BENZTROPINE MESYLATE [Concomitant]
  12. DOCUSATE CALCIUM [Concomitant]
  13. MULTI-VITAMIN [Concomitant]

REACTIONS (1)
  - GRANULOCYTOPENIA [None]
